FAERS Safety Report 9410270 (Version 1)
Quarter: 2013Q3

REPORT INFORMATION
  Report Type: Spontaneous
  Country: US (occurrence: US)
  Receive Date: 20130719
  Receipt Date: 20130719
  Transmission Date: 20140515
  Serious: Yes (Hospitalization)
  Sender: FDA-Public Use
  Company Number: US-PFIZER INC-2013212571

PATIENT
  Age: 33 Year
  Sex: Male
  Weight: 81.63 kg

DRUGS (1)
  1. GABAPENTIN [Suspect]
     Indication: NEUROPATHY PERIPHERAL
     Dosage: 400 MG, 2X/DAY
     Route: 048
     Dates: start: 2013

REACTIONS (1)
  - Back pain [Unknown]
